FAERS Safety Report 16126464 (Version 1)
Quarter: 2019Q2

REPORT INFORMATION
  Report Type: Spontaneous
  Country: US (occurrence: US)
  Receive Date: 20190327
  Receipt Date: 20190327
  Transmission Date: 20190711
  Serious: Yes (Other)
  Sender: FDA-Public Use
  Company Number: None

PATIENT
  Age: 54 Year
  Sex: Male
  Weight: 67.5 kg

DRUGS (6)
  1. LISINOPRIL. [Concomitant]
     Active Substance: LISINOPRIL
  2. ATORVASTATIN [Concomitant]
     Active Substance: ATORVASTATIN
  3. GLYMIPRIDE [Concomitant]
  4. TRULICITY [Suspect]
     Active Substance: DULAGLUTIDE
     Indication: DIABETES MELLITUS
     Dosage: ?          QUANTITY:1 INJECTION(S);OTHER FREQUENCY:ONCE A WEEK;OTHER ROUTE:INJECTED TO THE ABDOMINAL AREA?
     Dates: start: 20190317, end: 20190325
  5. JAMUMEL-XR [Concomitant]
  6. PIOGLITZONE [Concomitant]

REACTIONS (8)
  - Flatulence [None]
  - Asthenia [None]
  - Diarrhoea [None]
  - Dehydration [None]
  - Gastroenteritis viral [None]
  - Food poisoning [None]
  - Abdominal distension [None]
  - Vomiting [None]

NARRATIVE: CASE EVENT DATE: 20190319
